FAERS Safety Report 11493711 (Version 1)
Quarter: 2015Q3

REPORT INFORMATION
  Report Type: Spontaneous
  Country: US (occurrence: None)
  Receive Date: 20150910
  Receipt Date: 20150910
  Transmission Date: 20151125
  Serious: No
  Sender: FDA-Public Use
  Company Number: None

PATIENT
  Age: 62 Year
  Sex: Female

DRUGS (1)
  1. METHOTREXATE [Suspect]
     Active Substance: METHOTREXATE
     Indication: RHEUMATOID ARTHRITIS
     Dosage: 25MG  WEEKLY  SUBCUTANEOUSLY
     Route: 058
     Dates: start: 20150818, end: 20150901

REACTIONS (1)
  - Vomiting [None]

NARRATIVE: CASE EVENT DATE: 20150818
